FAERS Safety Report 8015051-8 (Version None)
Quarter: 2011Q4

REPORT INFORMATION
  Report Type: 
  Country: None (occurrence: None)
  Receive Date: 20111230
  Receipt Date: 20111228
  Transmission Date: 20120403
  Serious: Yes (Other)
  Sender: FDA-Public Use
  Company Number: US-BIOGENIDEC-2011BI045990

PATIENT
  Age: 31 Year
  Sex: Male

DRUGS (7)
  1. AMPYRA [Concomitant]
     Route: 048
     Dates: start: 20101102
  2. ADVAIR DISKUS 100/50 [Concomitant]
  3. IBUPROFEN [Concomitant]
     Route: 048
  4. TYSABRI [Suspect]
     Indication: MULTIPLE SCLEROSIS
     Route: 042
     Dates: start: 20110615, end: 20111108
  5. LEVOCETIRIZINE DIHYDROCHLORIDE [Concomitant]
     Route: 048
  6. TYSABRI [Suspect]
     Route: 042
     Dates: start: 20111201
  7. DETROL LA [Concomitant]
     Route: 048
     Dates: start: 20110513

REACTIONS (2)
  - MULTIPLE SCLEROSIS [None]
  - PROGRESSIVE MULTIFOCAL LEUKOENCEPHALOPATHY [None]
